FAERS Safety Report 6308280-2 (Version None)
Quarter: 2009Q3

REPORT INFORMATION
  Report Type: 
  Country: None (occurrence: None)
  Receive Date: 20090813
  Receipt Date: 20090806
  Transmission Date: 20100115
  Serious: Yes (Other)
  Sender: FDA-Public Use
  Company Number: JP-MERCK-0908USA01670

PATIENT
  Sex: Male

DRUGS (1)
  1. PEPCID [Suspect]
     Indication: GASTRITIS
     Route: 048

REACTIONS (1)
  - GASTRIC CANCER [None]
